FAERS Safety Report 4676955-7 (Version None)
Quarter: 2005Q2

REPORT INFORMATION
  Report Type: 
  Country: None (occurrence: None)
  Receive Date: 20050526
  Receipt Date: 20050514
  Transmission Date: 20051028
  Serious: Yes (Hospitalization, Other)
  Sender: FDA-Public Use
  Company Number: CA-SHR-04-022616

PATIENT
  Age: 51 Year
  Sex: Female

DRUGS (10)
  1. BETASERON [Suspect]
     Indication: MULTIPLE SCLEROSIS
     Dosage: 9.6 MIU, 3X/WEEK, SUBCUTANEOUS
     Route: 058
     Dates: start: 20011029
  2. DITROPAN [Concomitant]
  3. PROZAC [Concomitant]
  4. CARBAMAZEPINE [Concomitant]
  5. VIOXX [Concomitant]
  6. GLUCOSAMINE SULFATE (GLUCOSAMINE SULFATE) [Concomitant]
  7. VITAMIN D [Concomitant]
  8. MULTIVITAMINS (PANTHENOL, RETINOL) [Concomitant]
  9. AMITRIPTYLINE HCL [Concomitant]
  10. NOVO-FURANTOIN (NITROFURANTOIN) [Concomitant]

REACTIONS (5)
  - INCISION SITE COMPLICATION [None]
  - KNEE ARTHROPLASTY [None]
  - NEOPLASM [None]
  - PATELLA FRACTURE [None]
  - POSTOPERATIVE INFECTION [None]
